FAERS Safety Report 9011529 (Version 1)
Quarter: 2013Q1

REPORT INFORMATION
  Report Type: Spontaneous
  Country: IT (occurrence: IT)
  Receive Date: 20130108
  Receipt Date: 20130108
  Transmission Date: 20140127
  Serious: Yes (Hospitalization, Other)
  Sender: FDA-Public Use
  Company Number: IT-BRISTOL-MYERS SQUIBB COMPANY-17249566

PATIENT
  Age: 86 Year
  Sex: Female

DRUGS (6)
  1. COUMADIN TABS 5 MG [Suspect]
     Route: 048
     Dates: start: 20080101, end: 20121130
  2. TACHIDOL [Suspect]
     Dosage: 1DF:500MG/30MG TOTAL
     Route: 048
     Dates: start: 20121128, end: 20121128
  3. TRIATEC [Concomitant]
  4. ISOPTIN [Concomitant]
  5. LASIX [Concomitant]
  6. ZYLORIC [Concomitant]

REACTIONS (4)
  - Anaemia [Unknown]
  - Peptic ulcer [Unknown]
  - Overdose [Unknown]
  - International normalised ratio abnormal [Unknown]
